FAERS Safety Report 7393187-2 (Version None)
Quarter: 2011Q2

REPORT INFORMATION
  Report Type: 
  Country: None (occurrence: None)
  Receive Date: 20110404
  Receipt Date: 20110328
  Transmission Date: 20111010
  Serious: No
  Sender: FDA-Public Use
  Company Number: US-BAYER-2011-026959

PATIENT
  Sex: Female

DRUGS (3)
  1. ADALAT CC [Suspect]
     Indication: HYPERTENSION
     Dosage: UNK
  2. ALTACE [Concomitant]
  3. COZAAR [Concomitant]

REACTIONS (1)
  - BLOOD PRESSURE INCREASED [None]
